FAERS Safety Report 7813089-4 (Version None)
Quarter: 2011Q4

REPORT INFORMATION
  Report Type: 
  Country: None (occurrence: None)
  Receive Date: 20111013
  Receipt Date: 20111004
  Transmission Date: 20120403
  Serious: Yes (Other)
  Sender: FDA-Public Use
  Company Number: PHHY2011BR88407

PATIENT
  Age: 43 Year
  Sex: Male

DRUGS (10)
  1. ATENOLOL [Suspect]
     Indication: HYPERTENSION
     Dosage: 100 MG DAY
  2. LORAZEPAM [Suspect]
  3. DIOVAN [Suspect]
     Indication: HYPERTENSION
     Dosage: 320 MG DAY
  4. METHYLDOPA [Suspect]
     Indication: HYPERTENSION
     Dosage: 1500 MG,DAILY
  5. IMIPRAMINE [Suspect]
  6. HYGROTON [Suspect]
     Indication: HYPERTENSION
     Dosage: 25 MG, DAY
  7. AMLODIPINE [Suspect]
     Indication: HYPERTENSION
  8. CLONIDINE [Suspect]
     Indication: HYPERTENSION
     Dosage: 300 MG, UNK
  9. SPIRONOLACTONE [Suspect]
     Indication: HYPERTENSION
     Dosage: 25 MG,DAILY
  10. MINOXIDIL [Suspect]
     Indication: HYPERTENSION
     Dosage: 10 MG DAY

REACTIONS (6)
  - RENAL DISORDER [None]
  - BLOOD PRESSURE INCREASED [None]
  - NAUSEA [None]
  - HEADACHE [None]
  - VISUAL IMPAIRMENT [None]
  - LEFT VENTRICULAR HYPERTROPHY [None]
